FAERS Safety Report 9656007 (Version 2)
Quarter: 2013Q4

REPORT INFORMATION
  Report Type: Spontaneous
  Country: US (occurrence: US)
  Receive Date: 20131030
  Receipt Date: 20131105
  Transmission Date: 20140711
  Serious: Yes (Hospitalization)
  Sender: FDA-Public Use
  Company Number: US-MERCK-1310USA013790

PATIENT
  Sex: Female

DRUGS (5)
  1. JANUVIA [Suspect]
     Indication: DIABETES MELLITUS
     Dosage: 1 DF, QD  (ONE TABLET/ONCE A DAY)
     Route: 048
  2. ANTINEOPLASTIC (UNSPECIFIED) [Concomitant]
     Dosage: CHEMOTHERAPY
  3. GLIMEPIRIDE [Concomitant]
  4. CALCIUM (UNSPECIFIED) [Concomitant]
  5. VITAMIN D (UNSPECIFIED) [Concomitant]

REACTIONS (6)
  - Transfusion [Unknown]
  - Gait disturbance [Not Recovered/Not Resolved]
  - Asthenia [Not Recovered/Not Resolved]
  - Blood glucose increased [Not Recovered/Not Resolved]
  - Palpitations [Not Recovered/Not Resolved]
  - Abdominal discomfort [Not Recovered/Not Resolved]
